FAERS Safety Report 14453551 (Version 1)
Quarter: 2018Q1

REPORT INFORMATION
  Report Type: Spontaneous
  Country: US (occurrence: US)
  Receive Date: 20180129
  Receipt Date: 20180129
  Transmission Date: 20180509
  Serious: No
  Sender: FDA-Public Use
  Company Number: US-SUNOVION-2018SUN000209

PATIENT
  Sex: Female

DRUGS (2)
  1. KEPPRA [Concomitant]
     Active Substance: LEVETIRACETAM
     Dosage: UNK, BID
  2. APTIOM [Suspect]
     Active Substance: ESLICARBAZEPINE ACETATE
     Dosage: 1800 MG, QD
     Route: 048

REACTIONS (3)
  - Inappropriate schedule of drug administration [Unknown]
  - Somnolence [Unknown]
  - Medication error [Unknown]

NARRATIVE: CASE EVENT DATE: 20180117
